FAERS Safety Report 7919085-0 (Version None)
Quarter: 2011Q4

REPORT INFORMATION
  Report Type: 
  Country: None (occurrence: None)
  Receive Date: 20111116
  Receipt Date: 20111107
  Transmission Date: 20120403
  Serious: Yes (Hospitalization)
  Sender: FDA-Public Use
  Company Number: DE-ASTRAZENECA-2011SE67616

PATIENT
  Age: 64 Year
  Sex: Male

DRUGS (12)
  1. SEROQUEL [Suspect]
     Route: 048
  2. HYDROCHLOROTHIAZIDE [Concomitant]
     Route: 048
  3. SEROQUEL [Suspect]
     Route: 048
     Dates: start: 20110428, end: 20110428
  4. PROCHLORPERAZINE [Concomitant]
     Route: 048
  5. ALFUZOSIN HCL [Concomitant]
     Route: 048
  6. PANTOPRAZOLE [Suspect]
     Route: 048
     Dates: start: 20110429
  7. SPASMEX [Concomitant]
     Route: 048
  8. SEROQUEL [Suspect]
     Route: 048
     Dates: start: 20110428
  9. TRAMADOL HYDROCHLORIDE [Concomitant]
     Route: 048
  10. RAMIPRIL [Concomitant]
     Route: 048
  11. OMEPRAZOLE [Concomitant]
     Route: 048
     Dates: end: 20110428
  12. MAGNESIUM [Concomitant]
     Dosage: AS REQUIRED
     Route: 048

REACTIONS (2)
  - DERMATITIS ALLERGIC [None]
  - RASH [None]
